FAERS Safety Report 15605680 (Version 3)
Quarter: 2020Q2

REPORT INFORMATION
  Report Type: Report from Study
  Country: GB (occurrence: GB)
  Receive Date: 20181112
  Receipt Date: 20200508
  Transmission Date: 20200713
  Serious: Yes (Other)
  Sender: FDA-Public Use
  Company Number: GB-ACCORD-091468

PATIENT
  Age: 59 Year
  Sex: Female

DRUGS (6)
  1. METHOTREXATE. [Suspect]
     Active Substance: METHOTREXATE
     Indication: PRODUCT USED FOR UNKNOWN INDICATION
     Route: 065
  2. ABATACEPT [Suspect]
     Active Substance: ABATACEPT
     Indication: RHEUMATOID ARTHRITIS
     Dosage: 125 MG, QWK
     Route: 058
     Dates: start: 20151223
  3. FOLIC ACID. [Concomitant]
     Active Substance: FOLIC ACID
     Indication: PRODUCT USED FOR UNKNOWN INDICATION
     Route: 065
  4. OMEPRAZOLE. [Concomitant]
     Active Substance: OMEPRAZOLE
     Indication: PRODUCT USED FOR UNKNOWN INDICATION
  5. DIHYDROCODEINE BITARTRATE/PARACETAMOL [Concomitant]
     Active Substance: ACETAMINOPHEN\DIHYDROCODEINE BITARTRATE
     Indication: PRODUCT USED FOR UNKNOWN INDICATION
  6. PREGABALIN. [Concomitant]
     Active Substance: PREGABALIN
     Indication: PRODUCT USED FOR UNKNOWN INDICATION
     Route: 065

REACTIONS (7)
  - Oropharyngeal pain [Unknown]
  - Pain [Unknown]
  - Immunodeficiency [Unknown]
  - Lower respiratory tract infection [Unknown]
  - Pharyngitis [Not Recovered/Not Resolved]
  - Nasopharyngitis [Unknown]
  - Influenza [Unknown]
